FAERS Safety Report 7231321-5 (Version None)
Quarter: 2011Q1

REPORT INFORMATION
  Report Type: 
  Country: None (occurrence: None)
  Receive Date: 20110118
  Receipt Date: 20110104
  Transmission Date: 20110831
  Serious: Yes (Hospitalization)
  Sender: FDA-Public Use
  Company Number: US-CELGENEUS-163-21880-10121139

PATIENT
  Sex: Male

DRUGS (7)
  1. REVLIMID [Suspect]
     Indication: MULTIPLE MYELOMA
     Route: 048
     Dates: start: 20101101
  2. ACYCLOVIR [Concomitant]
     Route: 048
  3. UROXATRAL [Concomitant]
     Route: 065
  4. GLUCOSAMINE [Concomitant]
     Route: 065
  5. HYDROCHLOROTHIAZIDE [Concomitant]
     Route: 065
  6. CALCIUM WITH VITAMIN D [Concomitant]
     Route: 065
  7. ASA [Concomitant]
     Route: 048

REACTIONS (2)
  - SPINAL FRACTURE [None]
  - DEEP VEIN THROMBOSIS [None]
